FAERS Safety Report 14616777 (Version 1)
Quarter: 2018Q1

REPORT INFORMATION
  Report Type: Spontaneous
  Country: US (occurrence: US)
  Receive Date: 20180308
  Receipt Date: 20180308
  Transmission Date: 20180509
  Serious: Yes (Life-Threatening, Other)
  Sender: FDA-Public Use
  Company Number: None

PATIENT
  Age: 43 Year
  Sex: Female
  Weight: 108 kg

DRUGS (1)
  1. DULUXOTINE [Suspect]
     Active Substance: DULOXETINE
     Indication: FIBROMYALGIA
     Route: 048
     Dates: start: 20180102, end: 20180131

REACTIONS (6)
  - Irritability [None]
  - Drug withdrawal syndrome [None]
  - Hyperhidrosis [None]
  - Product substitution issue [None]
  - Suicidal ideation [None]
  - Paraesthesia [None]

NARRATIVE: CASE EVENT DATE: 20180130
